FAERS Safety Report 25038329 (Version 1)
Quarter: 2025Q1

REPORT INFORMATION
  Report Type: Spontaneous
  Country: US (occurrence: US)
  Receive Date: 20250304
  Receipt Date: 20250304
  Transmission Date: 20250409
  Serious: Yes (Other)
  Sender: BRISTOL-MYERS SQUIBB COMPANY
  Company Number: US-BRISTOL-MYERS SQUIBB COMPANY-2025-025738

PATIENT
  Age: 65 Year
  Sex: Male
  Weight: 61.3 kg

DRUGS (1)
  1. ABECMA [Suspect]
     Active Substance: IDECABTAGENE VICLEUCEL
     Indication: Plasma cell myeloma
     Dosage: DOSE : 449.78 TO510 X 106 BCMA CAR-POSITIVE T CELLS
     Route: 042
     Dates: start: 20240708

REACTIONS (4)
  - Myelodysplastic syndrome [Unknown]
  - Acute leukaemia [Unknown]
  - Anaemia [Unknown]
  - Platelet count decreased [Unknown]

NARRATIVE: CASE EVENT DATE: 20250109
